FAERS Safety Report 8018926-9 (Version None)
Quarter: 2012Q1

REPORT INFORMATION
  Report Type: 
  Country: None (occurrence: None)
  Receive Date: 20120103
  Receipt Date: 20111227
  Transmission Date: 20120608
  Serious: Yes (Hospitalization, Other)
  Sender: FDA-Public Use
  Company Number: US-BAYER-2011-033903

PATIENT
  Sex: Female
  Weight: 72.562 kg

DRUGS (2)
  1. ORTHO EVRA [Concomitant]
  2. YAZ [Suspect]
     Indication: CONTRACEPTION
     Dosage: UNK
     Dates: start: 20070326, end: 20090801

REACTIONS (19)
  - GALLBLADDER DISORDER [None]
  - GALLBLADDER INJURY [None]
  - ANXIETY [None]
  - GALLBLADDER NON-FUNCTIONING [None]
  - NAUSEA [None]
  - HEADACHE [None]
  - WITHDRAWAL BLEED [None]
  - MATERNAL EXPOSURE TIMING UNSPECIFIED [None]
  - INJURY [None]
  - MENSTRUATION IRREGULAR [None]
  - PULMONARY EMBOLISM [None]
  - BILIARY DYSKINESIA [None]
  - DEEP VEIN THROMBOSIS [None]
  - ABDOMINAL PAIN UPPER [None]
  - CHOLECYSTITIS CHRONIC [None]
  - EMOTIONAL DISORDER [None]
  - UMBILICAL HERNIA [None]
  - METRORRHAGIA [None]
  - AFFECTIVE DISORDER [None]
